FAERS Safety Report 20351342 (Version 5)
Quarter: 2022Q3

REPORT INFORMATION
  Report Type: Report from Study
  Country: CA (occurrence: CA)
  Receive Date: 20220119
  Receipt Date: 20220824
  Transmission Date: 20221027
  Serious: Yes (Death, Other)
  Sender: FDA-Public Use
  Company Number: CA-OTSUKA-2021_040472

PATIENT
  Sex: Female

DRUGS (3)
  1. CEDAZURIDINE\DECITABINE [Suspect]
     Active Substance: CEDAZURIDINE\DECITABINE
     Indication: Myelodysplastic syndrome
     Dosage: (35 MG DECITABINE AND 100 MG CEDAZURIDINE) 4 TABLET
     Route: 065
     Dates: start: 20211019
  2. CEDAZURIDINE\DECITABINE [Suspect]
     Active Substance: CEDAZURIDINE\DECITABINE
     Dosage: (35 MG DECITABINE AND 100 MG CEDAZURIDINE), 3 TABLET
     Route: 065
     Dates: start: 20211019
  3. CEDAZURIDINE\DECITABINE [Suspect]
     Active Substance: CEDAZURIDINE\DECITABINE
     Dosage: UNK, (35 MG DECITABINE AND 100 MG CEDAZURIDINE), QOD (EVERY OTHER DAY)
     Route: 065

REACTIONS (8)
  - Death [Fatal]
  - Full blood count abnormal [Unknown]
  - Haemoglobin decreased [Unknown]
  - Dysphonia [Unknown]
  - Heart rate increased [Unknown]
  - Dizziness [Unknown]
  - Product use issue [Unknown]
  - Therapy interrupted [Unknown]
